FAERS Safety Report 4561053-3 (Version None)
Quarter: 2005Q1

REPORT INFORMATION
  Report Type: 
  Country: None (occurrence: None)
  Receive Date: 20050126
  Receipt Date: 20041006
  Transmission Date: 20050727
  Serious: No
  Sender: FDA-Public Use
  Company Number: US-BRISTOL-MYERS SQUIBB COMPANY-12724514

PATIENT
  Age: 21 Year
  Sex: Female
  Weight: 95 kg

DRUGS (9)
  1. METFORMIN HCL [Suspect]
     Indication: DIABETES MELLITUS NON-INSULIN-DEPENDENT
     Route: 048
  2. PAXIL [Concomitant]
  3. NORVASC [Concomitant]
  4. NAPROXEN [Concomitant]
  5. PRECOSE [Concomitant]
  6. SYNTHROID [Concomitant]
  7. INSULIN [Concomitant]
     Dosage: ^NOVO 75/25^
  8. ENBREL [Concomitant]
  9. METHOTREXATE [Concomitant]

REACTIONS (3)
  - FATIGUE [None]
  - LETHARGY [None]
  - RESPIRATORY DISORDER [None]
